FAERS Safety Report 4339956-4 (Version None)
Quarter: 2004Q2

REPORT INFORMATION
  Report Type: 
  Country: None (occurrence: None)
  Receive Date: 20040414
  Receipt Date: 20040401
  Transmission Date: 20050107
  Serious: Yes (Hospitalization, Other)
  Sender: FDA-Public Use
  Company Number: 2004022452

PATIENT
  Age: 79 Year
  Sex: Male
  Weight: 84.8226 kg

DRUGS (12)
  1. VIAGRA [Suspect]
     Indication: ILL-DEFINED DISORDER
     Dosage: 100 MG (PRN), ORAL
     Route: 048
     Dates: start: 20021219, end: 20021219
  2. VALSARTAN (VALSARTAN) [Concomitant]
  3. TRIAMTERENE (TRIAMTERENE) [Concomitant]
  4. POTASSIUM CHLORIDE [Concomitant]
  5. ACETYLSALICYLIC ACID SRT [Concomitant]
  6. DICLOFENAC SODIUM [Concomitant]
  7. TOCOPHEROL CONCENTRATE CAP [Concomitant]
  8. FOLIC ACID [Concomitant]
  9. CENTRUM SILVER (ASCORBIC ACID, CALCIUM, MINERALS NOS, RETINOL, TCOPHER [Concomitant]
  10. DOXAZOSIN MESYLATE [Concomitant]
  11. DONEPEXIL HYDROCHLORIDE (DONEPEXIL HYDROCHLORIDE) [Concomitant]
  12. LORATADINE [Concomitant]

REACTIONS (2)
  - CEREBROVASCULAR ACCIDENT [None]
  - WEIGHT DECREASED [None]
